FAERS Safety Report 6624276-5 (Version None)
Quarter: 2010Q1

REPORT INFORMATION
  Report Type: 
  Country: None (occurrence: None)
  Receive Date: 20100310
  Receipt Date: 20091104
  Transmission Date: 20100710
  Serious: No
  Sender: FDA-Public Use
  Company Number: US-BIOGENIDEC-2009BI035645

PATIENT
  Age: 34 Year
  Sex: Male

DRUGS (2)
  1. AVONEX [Suspect]
     Indication: MULTIPLE SCLEROSIS
     Route: 030
     Dates: start: 20000202, end: 20020101
  2. AVONEX [Suspect]
     Route: 030
     Dates: start: 20080101

REACTIONS (6)
  - FACE INJURY [None]
  - FALL [None]
  - MOUTH INJURY [None]
  - SCAR [None]
  - SKIN LACERATION [None]
  - TOOTH FRACTURE [None]
